FAERS Safety Report 7645686-3 (Version None)
Quarter: 2011Q3

REPORT INFORMATION
  Report Type: 
  Country: None (occurrence: None)
  Receive Date: 20110729
  Receipt Date: 20110721
  Transmission Date: 20111222
  Serious: Yes (Hospitalization, Other)
  Sender: FDA-Public Use
  Company Number: US-US-EMD SERONO, INC.-7072408

PATIENT
  Sex: Male

DRUGS (1)
  1. REBIF [Suspect]
     Indication: MULTIPLE SCLEROSIS
     Route: 058
     Dates: start: 20080630

REACTIONS (5)
  - CARDIAC PACEMAKER INSERTION [None]
  - MYOCARDIAL INFARCTION [None]
  - MULTIPLE SCLEROSIS [None]
  - PARKINSON'S DISEASE [None]
  - URINARY TRACT INFECTION [None]
